FAERS Safety Report 20768857 (Version 1)
Quarter: 2022Q2

REPORT INFORMATION
  Report Type: Spontaneous
  Country: CA (occurrence: None)
  Receive Date: 20220429
  Receipt Date: 20220429
  Transmission Date: 20220721
  Serious: Yes (Other)
  Sender: FDA-Public Use
  Company Number: CA-ROCHE-3085283

PATIENT
  Age: 49 Year
  Sex: Female
  Weight: 51 kg

DRUGS (10)
  1. RITUXIMAB [Suspect]
     Active Substance: RITUXIMAB
     Indication: Granulomatosis with polyangiitis
     Route: 041
  2. CYCLOSPORINE [Concomitant]
     Active Substance: CYCLOSPORINE
  3. CYCLOSPORINE [Concomitant]
     Active Substance: CYCLOSPORINE
  4. CLOBAZAM [Concomitant]
     Active Substance: CLOBAZAM
  5. KEPPRA [Concomitant]
     Active Substance: LEVETIRACETAM
  6. LACOSAMIDE [Concomitant]
     Active Substance: LACOSAMIDE
  7. METOPROLOL [Concomitant]
     Active Substance: METOPROLOL
  8. NIFEDIPINE [Concomitant]
     Active Substance: NIFEDIPINE
  9. NITROGLYCERIN [Concomitant]
     Active Substance: NITROGLYCERIN
  10. PHENYTOIN [Concomitant]
     Active Substance: PHENYTOIN

REACTIONS (10)
  - Asthenia [Unknown]
  - C-reactive protein increased [Unknown]
  - Depressed level of consciousness [Unknown]
  - Disease recurrence [Unknown]
  - Granulomatosis with polyangiitis [Unknown]
  - Hip fracture [Unknown]
  - Intentional product use issue [Unknown]
  - Off label use [Unknown]
  - Seizure [Unknown]
  - Urinary tract infection [Unknown]
